FAERS Safety Report 17879620 (Version 1)
Quarter: 2020Q2

REPORT INFORMATION
  Report Type: Report from Study
  Country: CA (occurrence: CA)
  Receive Date: 20200610
  Receipt Date: 20200610
  Transmission Date: 20200714
  Serious: Yes (Death, Life-Threatening, Disabling, Other)
  Sender: FDA-Public Use
  Company Number: NVSC2020CA158381

PATIENT
  Age: 80 Year
  Sex: Female
  Weight: 43 kg

DRUGS (3)
  1. ASA [Concomitant]
     Active Substance: ASPIRIN
     Indication: PRODUCT USED FOR UNKNOWN INDICATION
     Dosage: 180 MG
     Route: 065
     Dates: start: 20200304
  2. LEVOPHED [Concomitant]
     Active Substance: NOREPINEPHRINE BITARTRATE
     Indication: PRODUCT USED FOR UNKNOWN INDICATION
     Dosage: UNK
     Route: 065
  3. BYL719 [Suspect]
     Active Substance: ALPELISIB
     Indication: BREAST CANCER METASTATIC
     Dosage: 300 MG
     Route: 048
     Dates: start: 20200227, end: 20200302

REACTIONS (19)
  - Presyncope [Unknown]
  - Acidosis [Unknown]
  - Sepsis [Unknown]
  - Nausea [Fatal]
  - Dysarthria [Unknown]
  - Dehydration [Unknown]
  - Diabetic ketoacidosis [Fatal]
  - Dizziness postural [None]
  - Hypotension [Unknown]
  - Dyspnoea [Unknown]
  - Vomiting [Unknown]
  - Multiple organ dysfunction syndrome [Fatal]
  - Hypoxia [Unknown]
  - Cough [Recovered/Resolved]
  - Hyperglycaemia [Unknown]
  - Renal failure [Unknown]
  - Feeding disorder [Unknown]
  - Fall [Unknown]
  - Hyponatraemia [Unknown]

NARRATIVE: CASE EVENT DATE: 20200228
